FAERS Safety Report 9964286 (Version 2)
Quarter: 2014Q3

REPORT INFORMATION
  Report Type: Spontaneous
  Country: SE (occurrence: SE)
  Receive Date: 20140305
  Receipt Date: 20140728
  Transmission Date: 20150326
  Serious: Yes (Other)
  Sender: FDA-Public Use
  Company Number: SE-TEVA-466015ISR

PATIENT
  Sex: Female

DRUGS (22)
  1. TOPIRAMATE. [Suspect]
     Active Substance: TOPIRAMATE
  2. CISORDINOL [Suspect]
     Active Substance: ZUCLOPENTHIXOL
  3. PARGITAN 5 MG TABLETT [Suspect]
     Active Substance: TRIHEXYPHENIDYL HYDROCHLORIDE
  4. QUETIAPINE [Suspect]
     Active Substance: QUETIAPINE
     Dosage: FORM OF ADMIN: FILMDRAGERAD TABLETT.
  5. HEMINEVRIN [Suspect]
     Active Substance: CLOMETHIAZOLE
  6. ERGENYL [Suspect]
     Active Substance: VALPROIC ACID
  7. NOZINAN [Suspect]
     Active Substance: LEVOMEPROMAZINE
  8. SEROQUEL [Suspect]
     Active Substance: QUETIAPINE FUMARATE
  9. ATARAX [Suspect]
     Active Substance: HYDROXYZINE\HYDROXYZINE HYDROCHLORIDE
  10. CETIRIZINE [Suspect]
     Active Substance: CETIRIZINE HYDROCHLORIDE
  11. AKINETON [Suspect]
     Active Substance: BIPERIDEN HYDROCHLORIDE
  12. LITHIONIT [Suspect]
     Active Substance: LITHIUM SULFATE
  13. IMOVANE [Suspect]
     Active Substance: ZOPICLONE
  14. SOBRIL [Suspect]
     Active Substance: OXAZEPAM
  15. FLUOXETINE [Suspect]
     Active Substance: FLUOXETINE\FLUOXETINE HYDROCHLORIDE
  16. OMEPRAZOLE. [Suspect]
     Active Substance: OMEPRAZOLE
  17. ZYPREXA [Suspect]
     Active Substance: OLANZAPINE
  18. STESOLID [Suspect]
     Active Substance: DIAZEPAM
  19. PROPAVAN 25 MG TABLETT [Suspect]
     Active Substance: PROPIOMAZINE
  20. OXASCAND [Suspect]
     Active Substance: OXAZEPAM
  21. THERALEN [Suspect]
     Active Substance: TRIMEPRAZINE
  22. INVEGA [Suspect]
     Active Substance: PALIPERIDONE
     Dosage: FORM OF ADMIN: DEPOTTABLETT

REACTIONS (19)
  - Blood prolactin increased [Unknown]
  - Fatigue [Unknown]
  - Palpitations [Unknown]
  - Dysuria [Unknown]
  - Dyskinesia [Unknown]
  - Galactorrhoea [Unknown]
  - Aggression [Unknown]
  - Hyperhidrosis [Unknown]
  - Amenorrhoea [Unknown]
  - Weight increased [Unknown]
  - Tremor [Unknown]
  - Swelling [Unknown]
  - Muscular weakness [Unknown]
  - Dyspnoea [Unknown]
  - Abdominal pain [Unknown]
  - Ovarian germ cell cancer stage II [Unknown]
  - Agitation [Unknown]
  - Muscle spasms [Unknown]
  - Breast enlargement [Unknown]
